FAERS Safety Report 9236136 (Version 1)
Quarter: 2013Q2

REPORT INFORMATION
  Report Type: Spontaneous
  Country: US (occurrence: None)
  Receive Date: 20130416
  Receipt Date: 20130416
  Transmission Date: 20140414
  Serious: Yes (Other)
  Sender: FDA-Public Use
  Company Number: None

PATIENT
  Age: 79 Year
  Sex: Female
  Weight: 58.97 kg

DRUGS (1)
  1. CLOPIDOGREL 75MG [Suspect]
     Indication: CORONARY ARTERIAL STENT INSERTION
     Dates: start: 20130125, end: 20130318

REACTIONS (2)
  - Faeces discoloured [None]
  - Product substitution issue [None]
